FAERS Safety Report 6389255-4 (Version None)
Quarter: 2009Q4

REPORT INFORMATION
  Report Type: 
  Country: None (occurrence: None)
  Receive Date: 20091006
  Receipt Date: 20090927
  Transmission Date: 20100525
  Serious: Yes (Death)
  Sender: FDA-Public Use
  Company Number: PHHO2009IN11916

PATIENT
  Sex: Female

DRUGS (1)
  1. CERTICAN [Suspect]
     Indication: OVARIAN CANCER
     Dosage: 5 MG / DAY
     Route: 048

REACTIONS (1)
  - FLUID RETENTION [None]
